FAERS Safety Report 7615712-6 (Version None)
Quarter: 2011Q3

REPORT INFORMATION
  Report Type: 
  Country: None (occurrence: None)
  Receive Date: 20110711
  Receipt Date: 20110627
  Transmission Date: 20111222
  Serious: Yes (Hospitalization)
  Sender: FDA-Public Use
  Company Number: 2011-2146

PATIENT
  Age: 50 Year
  Sex: Male

DRUGS (3)
  1. SOMATULINE DEPOT [Suspect]
     Indication: PRODUCT USED FOR UNKNOWN INDICATION
     Dosage: 90 MG (90 MG,1 IN 4 WK)
     Dates: start: 20080828
  2. SOMATULINE DEPOT [Suspect]
  3. SOMATULINE DEPOT [Suspect]

REACTIONS (4)
  - MASS [None]
  - HEADACHE [None]
  - NECK PAIN [None]
  - HYPERTENSION [None]
